FAERS Safety Report 15576685 (Version 3)
Quarter: 2019Q1

REPORT INFORMATION
  Report Type: Spontaneous
  Country: JP (occurrence: JP)
  Receive Date: 20181101
  Receipt Date: 20190118
  Transmission Date: 20190417
  Serious: Yes (Death, Hospitalization, Disabling, Other)
  Sender: FDA-Public Use
  Company Number: JP-009507513-1810JPN003052J

PATIENT
  Age: 44 Year
  Sex: Male
  Weight: 84 kg

DRUGS (10)
  1. SYMPROIC [Concomitant]
     Active Substance: NALDEMEDINE
     Dosage: 0.2 MILLIGRAM, QD
     Route: 048
     Dates: start: 20180918, end: 20181117
  2. LANSOPRAZOLE OD [Concomitant]
     Active Substance: LANSOPRAZOLE
     Dosage: 15 MILLIGRAM, QD
     Route: 048
     Dates: start: 201504, end: 20181117
  3. NAIXAN [Concomitant]
     Active Substance: NAPROXEN SODIUM
     Dosage: 100 MILLIGRAM, TID
     Route: 048
     Dates: start: 20180629, end: 20181114
  4. OXYCONTIN [Concomitant]
     Active Substance: OXYCODONE HYDROCHLORIDE
     Dosage: 30 MILLIGRAM, BID
     Route: 048
     Dates: start: 20180918, end: 20181101
  5. FEBURIC [Concomitant]
     Active Substance: FEBUXOSTAT
     Dosage: 20 MILLIGRAM, QD
     Route: 048
     Dates: start: 201504, end: 20181101
  6. NOVAMIN [Concomitant]
     Dosage: 5 MILLIGRAM, TID
     Route: 048
     Dates: start: 20180918, end: 20181117
  7. KEYTRUDA [Suspect]
     Active Substance: PEMBROLIZUMAB
     Indication: TRANSITIONAL CELL CARCINOMA
     Dosage: 200 MILLIGRAM, Q3W
     Route: 041
     Dates: start: 20181002, end: 20181002
  8. NIFEDIPINE CR [Concomitant]
     Active Substance: NIFEDIPINE
     Dosage: 40 MILLIGRAM, QD
     Route: 048
     Dates: start: 201504, end: 20181025
  9. VITAMEDIN [Concomitant]
     Active Substance: CYANOCOBALAMIN\PYRIDOXINE HYDROCHLORIDE\THIAMINE
     Dosage: 1 DOSAGE FORM, TID
     Route: 048
     Dates: start: 201504, end: 20181117
  10. TENELIA [Concomitant]
     Active Substance: TENELIGLIPTIN
     Dosage: 20 MILLIGRAM, QD
     Route: 048
     Dates: start: 201509, end: 20181104

REACTIONS (2)
  - Malignant neoplasm progression [Fatal]
  - Liver disorder [Not Recovered/Not Resolved]

NARRATIVE: CASE EVENT DATE: 20181023
